FAERS Safety Report 21516064 (Version 2)
Quarter: 2022Q4

REPORT INFORMATION
  Report Type: Report from Study
  Country: US (occurrence: US)
  Receive Date: 20221027
  Receipt Date: 20221214
  Transmission Date: 20230113
  Serious: Yes (Death, Other)
  Sender: FDA-Public Use
  Company Number: US-GW PHARMA-2022-US-033674

PATIENT
  Sex: Male

DRUGS (1)
  1. EPIDIOLEX [Suspect]
     Active Substance: CANNABIDIOL
     Indication: Lennox-Gastaut syndrome
     Dosage: 100 MILLILITER
     Route: 048
     Dates: start: 201903, end: 202209

REACTIONS (3)
  - Seizure [Fatal]
  - Urinary tract infection [Fatal]
  - Multiple-drug resistance [Fatal]
